FAERS Safety Report 20873754 (Version 1)
Quarter: 2022Q2

REPORT INFORMATION
  Report Type: Report from Study
  Country: US (occurrence: US)
  Receive Date: 20220525
  Receipt Date: 20220525
  Transmission Date: 20220721
  Serious: Yes (Other)
  Sender: FDA-Public Use
  Company Number: US-BRISTOL-MYERS SQUIBB COMPANY-2022-041118

PATIENT
  Age: 55 Year
  Sex: Male

DRUGS (1)
  1. ZEPOSIA [Suspect]
     Active Substance: OZANIMOD HYDROCHLORIDE
     Indication: Colitis ulcerative
     Route: 048
     Dates: start: 20220506, end: 20220510

REACTIONS (6)
  - Peripheral swelling [Recovered/Resolved]
  - Haemorrhage [Unknown]
  - Skin fissures [Unknown]
  - Vision blurred [Unknown]
  - Urinary incontinence [Unknown]
  - Muscle spasms [Unknown]
